APPROVED DRUG PRODUCT: TRILITRON
Active Ingredient: PSEUDOEPHEDRINE HYDROCHLORIDE; TRIPROLIDINE HYDROCHLORIDE
Strength: 30MG/5ML;1.25MG/5ML
Dosage Form/Route: SYRUP;ORAL
Application: A088474 | Product #001
Applicant: NEWTRON PHARMACEUTICALS INC
Approved: Feb 12, 1985 | RLD: No | RS: No | Type: DISCN